FAERS Safety Report 5908545-X (Version None)
Quarter: 2008Q4

REPORT INFORMATION
  Report Type: 
  Country: None (occurrence: None)
  Receive Date: 20081001
  Receipt Date: 20080915
  Transmission Date: 20090506
  Serious: Yes (Hospitalization, Other)
  Sender: FDA-Public Use
  Company Number: GXKR2008US08792

PATIENT
  Age: 8 Year
  Sex: Male

DRUGS (2)
  1. PREDNISONE [Suspect]
     Indication: SARCOIDOSIS
     Dosage: 1 MG/KG, QD
  2. METHYLPREDNISOLONE [Suspect]
     Indication: SARCOIDOSIS
     Dosage: 10 MG/KG ON DAY 1, INTRAVENOUS
     Route: 042

REACTIONS (11)
  - ANAEMIA [None]
  - BONE INFARCTION [None]
  - CONCOMITANT DISEASE AGGRAVATED [None]
  - FAT EMBOLISM [None]
  - LEUKOCYTOSIS [None]
  - LYMPHADENOPATHY [None]
  - PAIN IN EXTREMITY [None]
  - PERICARDIAL DISEASE [None]
  - PLEURAL EFFUSION [None]
  - PULMONARY OEDEMA [None]
  - VASCULAR OCCLUSION [None]
